FAERS Safety Report 12778983 (Version 1)
Quarter: 2016Q3

REPORT INFORMATION
  Report Type: Spontaneous
  Country: US (occurrence: US)
  Receive Date: 20160926
  Receipt Date: 20160926
  Transmission Date: 20161109
  Serious: No
  Sender: FDA-Public Use
  Company Number: US-JAZZ-2016-US-011415

PATIENT
  Sex: Male

DRUGS (45)
  1. XYREM [Suspect]
     Active Substance: SODIUM OXYBATE
     Dosage: 4.5 G, BID
     Route: 048
     Dates: start: 200911, end: 2012
  2. XYREM [Suspect]
     Active Substance: SODIUM OXYBATE
     Dosage: 4.5 G, BID
     Route: 048
     Dates: start: 201212
  3. COLACE [Concomitant]
     Active Substance: DOCUSATE SODIUM
  4. TAMSULOSIN HCL [Concomitant]
     Active Substance: TAMSULOSIN
  5. TYLENOL ARTHRITIS PAIN [Concomitant]
     Active Substance: ACETAMINOPHEN
  6. ASPIRIN. [Concomitant]
     Active Substance: ASPIRIN
  7. DICLOFENAC SODIUM. [Concomitant]
     Active Substance: DICLOFENAC SODIUM
  8. XYREM [Suspect]
     Active Substance: SODIUM OXYBATE
     Indication: CATAPLEXY
     Dosage: DOSE ADJUSTMENTS
     Route: 048
     Dates: start: 200504, end: 200911
  9. ALPHAGAN P [Concomitant]
     Active Substance: BRIMONIDINE TARTRATE
  10. PREDNISOLONE. [Concomitant]
     Active Substance: PREDNISOLONE
  11. LEVOFLOXACIN. [Concomitant]
     Active Substance: LEVOFLOXACIN
  12. BEANO [Concomitant]
     Active Substance: ASPERGILLUS NIGER .ALPHA.-GALACTOSIDASE
  13. FINASTERIDE. [Concomitant]
     Active Substance: FINASTERIDE
  14. FISH OIL [Concomitant]
     Active Substance: FISH OIL
  15. XYREM [Suspect]
     Active Substance: SODIUM OXYBATE
     Indication: NARCOLEPSY
     Dosage: 3 G, BID
     Route: 048
     Dates: start: 200503, end: 200504
  16. IRON [Concomitant]
     Active Substance: IRON
  17. CETIRIZINE HCL [Concomitant]
     Active Substance: CETIRIZINE HYDROCHLORIDE
  18. LOSARTAN POTASSIUM. [Concomitant]
     Active Substance: LOSARTAN POTASSIUM
  19. GLIMEPIRIDE. [Concomitant]
     Active Substance: GLIMEPIRIDE
  20. DOXEPIN [Concomitant]
     Active Substance: DOXEPIN
  21. RITALIN [Concomitant]
     Active Substance: METHYLPHENIDATE HYDROCHLORIDE
  22. ZOLPIDEM TARTRATE. [Concomitant]
     Active Substance: ZOLPIDEM TARTRATE
  23. MOXIFLOXACIN HCL [Concomitant]
     Active Substance: MOXIFLOXACIN
  24. ATORVASTATIN [Concomitant]
     Active Substance: ATORVASTATIN
  25. LACTAID FAST ACT [Concomitant]
     Active Substance: LACTASE
  26. NASONEX [Concomitant]
     Active Substance: MOMETASONE FUROATE
  27. FLUTICASONE PROPIONATE. [Concomitant]
     Active Substance: FLUTICASONE PROPIONATE
  28. VITAMIN C [Concomitant]
     Active Substance: ASCORBIC ACID
  29. METFORMIN HCL [Concomitant]
     Active Substance: METFORMIN HYDROCHLORIDE
  30. VENLAFAXINE HCL [Concomitant]
     Active Substance: VENLAFAXINE HYDROCHLORIDE
  31. VERAPAMIL [Concomitant]
     Active Substance: VERAPAMIL HYDROCHLORIDE
  32. ZAFIRLUKAST. [Concomitant]
     Active Substance: ZAFIRLUKAST
  33. GLUCOSAMINE + CHONDROITIN [Concomitant]
  34. OMEPRAZOLE. [Concomitant]
     Active Substance: OMEPRAZOLE
  35. LORTAB [Concomitant]
     Active Substance: ACETAMINOPHEN\HYDROCODONE BITARTRATE
  36. CIPROFLOXACIN. [Concomitant]
     Active Substance: CIPROFLOXACIN
  37. KETOROLAC TROMETHALINE [Concomitant]
  38. LISINOPRIL AND HYDROCHLOROTHIAZIDE [Concomitant]
     Active Substance: HYDROCHLOROTHIAZIDE\LISINOPRIL
  39. NYSTATIN W/TRIAMCINOLONE [Concomitant]
  40. AVELOX [Concomitant]
     Active Substance: MOXIFLOXACIN HYDROCHLORIDE
  41. ADVIL [Concomitant]
     Active Substance: IBUPROFEN
  42. STEROID [Concomitant]
     Active Substance: UNSPECIFIED INGREDIENT
  43. PRAMIPEXOLE DIHCL [Concomitant]
     Active Substance: PRAMIPEXOLE DIHYDROCHLORIDE
  44. CALCIUM +D [Concomitant]
     Active Substance: CALCIUM\VITAMIN D
  45. METAMUCIL [Concomitant]
     Active Substance: PLANTAGO SEED

REACTIONS (1)
  - Nasopharyngitis [Recovering/Resolving]
